FAERS Safety Report 23298467 (Version 1)
Quarter: 2023Q4

REPORT INFORMATION
  Report Type: Spontaneous
  Country: CN (occurrence: CN)
  Receive Date: 20231214
  Receipt Date: 20231214
  Transmission Date: 20240109
  Serious: Yes (Disabling, Other)
  Sender: FDA-Public Use
  Company Number: CN-AMGEN-CHNSP2023220298

PATIENT
  Age: 53 Year
  Sex: Female

DRUGS (4)
  1. KYPROLIS [Suspect]
     Active Substance: CARFILZOMIB
     Indication: Plasma cell myeloma
     Dosage: 60 MILLIGRAM, QD
     Route: 042
     Dates: start: 20231127, end: 20231128
  2. ARSENIC TRIOXIDE [Suspect]
     Active Substance: ARSENIC TRIOXIDE
     Indication: Plasma cell myeloma
     Dosage: 10 MILLIGRAM, QD
     Route: 042
     Dates: start: 20231128, end: 20231130
  3. SODIUM CHLORIDE [Concomitant]
     Active Substance: SODIUM CHLORIDE
     Indication: Plasma cell myeloma
     Dosage: 500 MILLILITER, QD, IVGTT
     Route: 042
     Dates: start: 20231128, end: 20231130
  4. STERILE WATER [Concomitant]
     Active Substance: WATER
     Indication: Plasma cell myeloma
     Dosage: 29 MILLILITER, QD
     Route: 042
     Dates: start: 20231127, end: 20231128

REACTIONS (2)
  - White blood cell count decreased [Recovering/Resolving]
  - Granulocyte count decreased [Recovering/Resolving]

NARRATIVE: CASE EVENT DATE: 20231201
